FAERS Safety Report 10043629 (Version 2)
Quarter: 2014Q2

REPORT INFORMATION
  Report Type: Spontaneous
  Country: US (occurrence: US)
  Receive Date: 20140328
  Receipt Date: 20140404
  Transmission Date: 20141212
  Serious: Yes (Hospitalization)
  Sender: FDA-Public Use
  Company Number: US-SA-2014SA038305

PATIENT
  Age: 80 Year
  Sex: Female

DRUGS (3)
  1. PLAVIX [Suspect]
     Indication: PRODUCT USED FOR UNKNOWN INDICATION
     Route: 065
  2. AMBRISENTAN [Suspect]
     Indication: COR PULMONALE CHRONIC
     Route: 048
     Dates: start: 20140305
  3. TADALAFIL [Concomitant]

REACTIONS (4)
  - Chest pain [Unknown]
  - Haematochezia [Unknown]
  - Haemorrhage [Unknown]
  - Dyspnoea [Unknown]
